FAERS Safety Report 9828286 (Version 2)
Quarter: 2014Q1

REPORT INFORMATION
  Report Type: Report from Study
  Country: US (occurrence: US)
  Receive Date: 20140117
  Receipt Date: 20140117
  Transmission Date: 20141002
  Serious: Yes (Death, Hospitalization)
  Sender: FDA-Public Use
  Company Number: US-BRISTOL-MYERS SQUIBB COMPANY-19900562

PATIENT
  Age: 48 Year
  Sex: Male
  Weight: 91 kg

DRUGS (9)
  1. NIVOLUMAB [Suspect]
     Indication: METASTATIC MALIGNANT MELANOMA
     Route: 042
     Dates: start: 20130917, end: 20131111
  2. IPILIMUMAB [Suspect]
     Indication: METASTATIC MALIGNANT MELANOMA
     Route: 042
     Dates: start: 20130917, end: 20131111
  3. BLINDED: PLACEBO [Suspect]
     Indication: METASTATIC MALIGNANT MELANOMA
     Route: 042
     Dates: start: 20130917, end: 20131111
  4. REGLAN [Concomitant]
     Dates: start: 20130818
  5. COLACE [Concomitant]
     Dates: start: 20130819
  6. DILAUDID [Concomitant]
     Dates: start: 20130819
  7. GAS-X [Concomitant]
     Dosage: 1DF: 1TAB
     Dates: start: 20131004
  8. FERROUS SULFATE [Concomitant]
     Dates: start: 20131008
  9. PREDNISONE [Concomitant]
     Dosage: 11NOV13:10MG
     Dates: start: 20131018

REACTIONS (2)
  - Ascites [Not Recovered/Not Resolved]
  - Supraventricular tachycardia [Fatal]
